FAERS Safety Report 5132101-7 (Version None)
Quarter: 2006Q4

REPORT INFORMATION
  Report Type: 
  Country: None (occurrence: None)
  Receive Date: 20061017
  Receipt Date: 20060901
  Transmission Date: 20070319
  Serious: Yes (Death)
  Sender: FDA-Public Use
  Company Number: 2006BH013211

PATIENT
  Age: 45 Year
  Sex: Male

DRUGS (1)
  1. DIANEAL [Suspect]
     Indication: PERITONEAL DIALYSIS
     Dosage: IP
     Route: 033

REACTIONS (5)
  - CALCIPHYLAXIS [None]
  - CATHETER SITE INFECTION [None]
  - CELLULITIS [None]
  - OEDEMA [None]
  - RENAL FAILURE CHRONIC [None]
